FAERS Safety Report 4887618-7 (Version None)
Quarter: 2006Q1

REPORT INFORMATION
  Report Type: 
  Country: None (occurrence: None)
  Receive Date: 20060123
  Receipt Date: 20060111
  Transmission Date: 20060701
  Serious: Yes (Death)
  Sender: FDA-Public Use
  Company Number: US-BRISTOL-MYERS SQUIBB COMPANY-13244843

PATIENT
  Sex: Female

DRUGS (1)
  1. LAC-HYDRIN [Suspect]
     Route: 061

REACTIONS (1)
  - DEATH [None]
